FAERS Safety Report 12273428 (Version 1)
Quarter: 2016Q2

REPORT INFORMATION
  Report Type: Report from Study
  Country: CN (occurrence: CN)
  Receive Date: 20160415
  Receipt Date: 20160415
  Transmission Date: 20160815
  Serious: Yes (Hospitalization)
  Sender: FDA-Public Use
  Company Number: CN-ASTRAZENECA-2016SE38161

PATIENT
  Age: 54 Year
  Sex: Female
  Weight: 66 kg

DRUGS (5)
  1. METFORMIN [Concomitant]
     Active Substance: METFORMIN HYDROCHLORIDE
     Indication: TYPE 2 DIABETES MELLITUS
     Route: 048
  2. INSULIN [Concomitant]
     Active Substance: INSULIN NOS
     Indication: TYPE 2 DIABETES MELLITUS
     Dosage: 6U/QN
     Route: 058
     Dates: end: 20160406
  3. ROSUVASTATIN. [Concomitant]
     Active Substance: ROSUVASTATIN
     Indication: HYPERLIPIDAEMIA
     Dosage: 1 DF/QN
     Route: 048
  4. BAYASPIRIN [Concomitant]
     Active Substance: ASPIRIN
     Indication: PLATELET AGGREGATION ABNORMAL
     Dosage: 1 DF/QN
     Route: 048
  5. BYETTA [Suspect]
     Active Substance: EXENATIDE
     Indication: TYPE 2 DIABETES MELLITUS
     Route: 058
     Dates: start: 20160406

REACTIONS (7)
  - Chest discomfort [Unknown]
  - Vomiting [Unknown]
  - Hypoglycaemia [Unknown]
  - Dizziness [Unknown]
  - Nausea [Unknown]
  - Asthenia [Unknown]
  - Tachypnoea [Unknown]

NARRATIVE: CASE EVENT DATE: 20160406
